FAERS Safety Report 22908529 (Version 3)
Quarter: 2023Q4

REPORT INFORMATION
  Report Type: Spontaneous
  Country: US (occurrence: US)
  Receive Date: 20230905
  Receipt Date: 20231129
  Transmission Date: 20240109
  Serious: No
  Sender: FDA-Public Use
  Company Number: US-PFIZER INC-PV202200101126

PATIENT
  Age: 80 Year
  Sex: Female
  Weight: 73.016 kg

DRUGS (1)
  1. XELJANZ XR [Suspect]
     Active Substance: TOFACITINIB CITRATE
     Indication: Polyarthritis
     Dosage: 11 MG, DAILY
     Dates: start: 2021

REACTIONS (3)
  - Inflammatory marker increased [Unknown]
  - Off label use [Unknown]
  - Gait disturbance [Unknown]
